FAERS Safety Report 23628844 (Version 1)
Quarter: 2024Q1

REPORT INFORMATION
  Report Type: Spontaneous
  Country: US (occurrence: US)
  Receive Date: 20240313
  Receipt Date: 20240313
  Transmission Date: 20240410
  Serious: No
  Sender: FDA-Public Use
  Company Number: US-Blueprint Medicines Corporation-2714

PATIENT
  Sex: Female

DRUGS (2)
  1. AYVAKIT [Suspect]
     Active Substance: AVAPRITINIB
     Indication: Advanced systemic mastocytosis
     Dosage: TAKE ONE 25MG TABLET BY MOUTH WITH ONE 50MG TABLET FOR A TOTAL OF 75MG DAILY
     Route: 048
     Dates: start: 20230708
  2. AYVAKIT [Suspect]
     Active Substance: AVAPRITINIB
     Indication: Systemic mastocytosis
     Dosage: TAKE ONE 25MG TABLET BY MOUTH WITH ONE 50MG TABLET FOR A TOTAL OF 75MG DAILY
     Route: 048
     Dates: start: 20230708

REACTIONS (2)
  - Nausea [Unknown]
  - Adverse drug reaction [Unknown]
